FAERS Safety Report 5370507-1 (Version None)
Quarter: 2007Q2

REPORT INFORMATION
  Report Type: 
  Country: None (occurrence: None)
  Receive Date: 20070625
  Receipt Date: 20070625
  Transmission Date: 20071010
  Serious: No
  Sender: FDA-Public Use
  Company Number: None

PATIENT
  Age: 28 Year

DRUGS (3)
  1. AUGMENTIN '125' [Suspect]
     Dosage: 875 Q12 PO
     Route: 048
     Dates: start: 20070419, end: 20070422
  2. BENADRYL [Concomitant]
  3. EPINEPHRINE [Concomitant]

REACTIONS (2)
  - RASH ERYTHEMATOUS [None]
  - RASH PRURITIC [None]
